FAERS Safety Report 10203636 (Version 3)
Quarter: 2014Q2

REPORT INFORMATION
  Report Type: Report from Study
  Country: KR (occurrence: KR)
  Receive Date: 20140529
  Receipt Date: 20140620
  Transmission Date: 20141212
  Serious: Yes (Death)
  Sender: FDA-Public Use
  Company Number: KR-ROCHE-1402134

PATIENT
  Age: 74 Year
  Sex: Male
  Weight: 46.2 kg

DRUGS (16)
  1. TRASTUZUMAB [Suspect]
     Indication: HER-2 POSITIVE GASTRIC CANCER
     Dosage: LOADING DOSE
     Route: 042
     Dates: start: 20140117
  2. TRASTUZUMAB [Suspect]
     Dosage: MAINTENANCE DOSE?LAST DOSE PRIOR TO SERIOUS ADVERSE EVENT: 18/APR/2014
     Route: 042
  3. CAPECITABINE [Suspect]
     Indication: HER-2 POSITIVE GASTRIC CANCER
     Dosage: LAST DOSE PRIOR TO EVENT:  22/APR/2014
     Route: 048
     Dates: start: 20140117
  4. CISPLATIN [Suspect]
     Indication: HER-2 POSITIVE GASTRIC CANCER
     Dosage: LAST DOSE PRIOR TO SERIOUS ADVERSE EVENT:18/APR/2014
     Route: 042
     Dates: start: 20140117
  5. MAGNESIUM SULFATE [Concomitant]
     Indication: ELECTROLYTE IMBALANCE
     Route: 042
     Dates: start: 20140116
  6. SODIUM BICARBONATE [Concomitant]
     Indication: STOMATITIS
     Route: 050
     Dates: start: 20140116
  7. DEXAMETHASONE [Concomitant]
     Indication: NAUSEA
     Route: 042
     Dates: start: 20140117
  8. DEXAMETHASONE [Concomitant]
     Indication: VOMITING
  9. EMEND [Concomitant]
     Indication: NAUSEA
     Route: 048
     Dates: start: 20140117
  10. EMEND [Concomitant]
     Indication: VOMITING
  11. NASEA [Concomitant]
     Indication: NAUSEA
     Route: 042
     Dates: start: 20140117
  12. NASEA [Concomitant]
     Indication: VOMITING
  13. BISOLVON [Concomitant]
     Indication: PRODUCTIVE COUGH
  14. BISOLVON [Concomitant]
     Indication: COUGH
  15. PERTUZUMAB [Suspect]
     Indication: HER-2 POSITIVE GASTRIC CANCER
     Dosage: LOADING DOSE
     Route: 042
     Dates: start: 20140117
  16. PERTUZUMAB [Suspect]
     Dosage: MAINTENANCE DOSE?LAST DOSE PRIOR TO SERIOUS ADVERSE EVENT: 18/APR/2014
     Route: 042

REACTIONS (1)
  - Pneumonia [Fatal]
